FAERS Safety Report 8773784 (Version 1)
Quarter: 2012Q4

REPORT INFORMATION
  Report Type: 
  Country: US (occurrence: US)
  Receive Date: 20120907
  Receipt Date: 20120907
  Transmission Date: 20130627
  Serious: No
  Sender: FDA-Public Use
  Company Number: US-PFIZER INC-2012217419

PATIENT

DRUGS (3)
  1. PRISTIQ [Suspect]
     Indication: AFFECTIVE DISORDER
     Dosage: UNK
  2. EFFEXOR [Suspect]
     Indication: AFFECTIVE DISORDER
     Dosage: UNK
  3. CYMBALTA [Suspect]
     Indication: AFFECTIVE DISORDER
     Dosage: UNK

REACTIONS (2)
  - Neuralgia [Unknown]
  - Therapeutic response unexpected [Unknown]
